FAERS Safety Report 7803740-7 (Version None)
Quarter: 2011Q4

REPORT INFORMATION
  Report Type: 
  Country: None (occurrence: None)
  Receive Date: 20111010
  Receipt Date: 20111004
  Transmission Date: 20120403
  Serious: No
  Sender: FDA-Public Use
  Company Number: US-PFIZER INC-2011236947

PATIENT
  Sex: Female
  Weight: 58.957 kg

DRUGS (2)
  1. HYDROXYZINE [Concomitant]
     Dosage: UNK
  2. PRISTIQ [Suspect]
     Indication: DEPRESSION
     Dosage: 50 MG, 1X/DAY
     Route: 048
     Dates: start: 20090601

REACTIONS (9)
  - DRY MOUTH [None]
  - NAUSEA [None]
  - DIZZINESS [None]
  - WEIGHT INCREASED [None]
  - FEELING ABNORMAL [None]
  - PARAESTHESIA [None]
  - ABNORMAL DREAMS [None]
  - HUNGER [None]
  - HEADACHE [None]
